FAERS Safety Report 9034718 (Version 2)
Quarter: 2013Q2

REPORT INFORMATION
  Report Type: Spontaneous
  Country: JP (occurrence: JP)
  Receive Date: 20130128
  Receipt Date: 20130419
  Transmission Date: 20140414
  Serious: Yes (Hospitalization)
  Sender: FDA-Public Use
  Company Number: JP-GLAXOSMITHKLINE-B0862508A

PATIENT
  Sex: Male

DRUGS (2)
  1. HEPSERA [Suspect]
     Indication: HEPATIC CIRRHOSIS
     Route: 048
  2. ZEFIX 100 [Suspect]
     Indication: HEPATIC CIRRHOSIS
     Route: 048

REACTIONS (2)
  - Fanconi syndrome [Unknown]
  - Multiple fractures [Unknown]
